FAERS Safety Report 6631664-X (Version None)
Quarter: 2010Q1

REPORT INFORMATION
  Report Type: 
  Country: None (occurrence: None)
  Receive Date: 20100312
  Receipt Date: 20100308
  Transmission Date: 20100710
  Serious: Yes (Life-Threatening, Hospitalization)
  Sender: FDA-Public Use
  Company Number: FR-ASTRAZENECA-2010SE09883

PATIENT
  Age: 19 Year
  Sex: Male
  Weight: 110 kg

DRUGS (2)
  1. MOPRAL [Suspect]
     Route: 048
     Dates: start: 20050401
  2. METHOTREXATE [Interacting]
     Indication: BONE SARCOMA
     Route: 042
     Dates: start: 20050421, end: 20050421

REACTIONS (3)
  - DRUG INTERACTION [None]
  - DRUG LEVEL INCREASED [None]
  - RENAL FAILURE ACUTE [None]
